FAERS Safety Report 17223429 (Version 1)
Quarter: 2020Q1

REPORT INFORMATION
  Report Type: Spontaneous
  Country: NL (occurrence: NL)
  Receive Date: 20200102
  Receipt Date: 20200102
  Transmission Date: 20200409
  Serious: Yes (Hospitalization)
  Sender: FDA-Public Use
  Company Number: NL-TEVA-2019-NL-1160292

PATIENT
  Age: 61 Year
  Sex: Female
  Weight: 58 kg

DRUGS (1)
  1. CLINDAMYCIN. [Suspect]
     Active Substance: CLINDAMYCIN
     Indication: PULPITIS DENTAL
     Dosage: 600 MG, 1ST DOSE AND LAST DOSE , 600 MG
     Dates: start: 20191126, end: 20191126

REACTIONS (6)
  - Dry eye [Recovering/Resolving]
  - Pharyngeal swelling [Recovering/Resolving]
  - Eye swelling [Recovering/Resolving]
  - Anaphylactic shock [Recovering/Resolving]
  - Paraesthesia oral [Recovering/Resolving]
  - Tremor [Recovering/Resolving]

NARRATIVE: CASE EVENT DATE: 20191126
